FAERS Safety Report 14849691 (Version 1)
Quarter: 2018Q2

REPORT INFORMATION
  Report Type: Spontaneous
  Country: CN (occurrence: CN)
  Receive Date: 20180504
  Receipt Date: 20180504
  Transmission Date: 20180711
  Serious: Yes (Hospitalization)
  Sender: FDA-Public Use
  Company Number: CN-PFIZER INC-2018183152

PATIENT
  Age: 79 Year
  Sex: Female
  Weight: 54.97 kg

DRUGS (4)
  1. LIPITOR [Suspect]
     Active Substance: ATORVASTATIN CALCIUM
     Dosage: UNK
  2. BETALOC [Concomitant]
     Active Substance: METOPROLOL TARTRATE
     Indication: CORONARY ARTERY DISEASE
     Dosage: 12.5 MG, 2X/DAY
     Route: 048
     Dates: start: 20180113, end: 20180204
  3. LIPITOR [Suspect]
     Active Substance: ATORVASTATIN CALCIUM
     Indication: HYPERLIPIDAEMIA
     Dosage: 20 MG, 1X/DAY (EVERY NIGHT)
     Route: 048
     Dates: start: 20180113, end: 20180201
  4. BETALOC [Concomitant]
     Active Substance: METOPROLOL TARTRATE
     Indication: ARRHYTHMIA

REACTIONS (1)
  - Platelet count decreased [Recovered/Resolved]

NARRATIVE: CASE EVENT DATE: 20180201
